FAERS Safety Report 25842800 (Version 1)
Quarter: 2025Q3

REPORT INFORMATION
  Report Type: Spontaneous
  Country: CN (occurrence: CN)
  Receive Date: 20250924
  Receipt Date: 20250924
  Transmission Date: 20251021
  Serious: Yes (Hospitalization, Other)
  Sender: SCIEGEN PHARMACEUTICALS INC
  Company Number: CN-SCIEGENP-2025SCLIT00284

PATIENT
  Age: 26 Year
  Sex: Male

DRUGS (5)
  1. QUETIAPINE [Suspect]
     Active Substance: QUETIAPINE
     Indication: Depression
     Route: 065
  2. QUETIAPINE [Suspect]
     Active Substance: QUETIAPINE
     Route: 048
     Dates: start: 20230329
  3. VORTIOXETINE HYDROBROMIDE [Concomitant]
     Active Substance: VORTIOXETINE HYDROBROMIDE
     Indication: Depression
     Route: 065
  4. VENLAFAXINE HCL [Concomitant]
     Active Substance: VENLAFAXINE HYDROCHLORIDE
     Indication: Depression
     Dosage: SUSTAINED-RELEASE CAPSULES
     Route: 065
  5. ESTAZOLAM [Concomitant]
     Active Substance: ESTAZOLAM
     Indication: Depression
     Dosage: ONE TABLET, BEFORE BEDTIME
     Route: 065

REACTIONS (11)
  - Neuropathy peripheral [Recovering/Resolving]
  - Long QT syndrome [Recovering/Resolving]
  - Ventricular extrasystoles [Recovering/Resolving]
  - Loss of consciousness [Recovered/Resolved]
  - Acute kidney injury [Recovering/Resolving]
  - Atrioventricular dissociation [Recovering/Resolving]
  - Coma [Recovered/Resolved]
  - Ventricular tachycardia [Recovering/Resolving]
  - Rhabdomyolysis [Recovering/Resolving]
  - Toxicity to various agents [Unknown]
  - Overdose [Unknown]
